FAERS Safety Report 9881127 (Version 3)
Quarter: 2014Q1

REPORT INFORMATION
  Report Type: Report from Study
  Country: US (occurrence: US)
  Receive Date: 20140207
  Receipt Date: 20140310
  Transmission Date: 20141002
  Serious: Yes (Other)
  Sender: FDA-Public Use
  Company Number: US-NAPPMUNDI-USA-2014-0110870

PATIENT
  Sex: Female
  Weight: 49.89 kg

DRUGS (1)
  1. OXY CR TAB [Suspect]
     Indication: PRODUCT USED FOR UNKNOWN INDICATION
     Dosage: 240 MG, Q12H
     Route: 048
     Dates: start: 200803

REACTIONS (2)
  - Neoplasm malignant [Unknown]
  - Cystitis [Not Recovered/Not Resolved]
